FAERS Safety Report 9419876 (Version 1)
Quarter: 2013Q3

REPORT INFORMATION
  Report Type: Spontaneous
  Country: US (occurrence: None)
  Receive Date: 20130723
  Receipt Date: 20130723
  Transmission Date: 20140515
  Serious: Yes (Disabling, Congenital Anomaly)
  Sender: FDA-Public Use
  Company Number: None

PATIENT
  Age: 1 Day
  Sex: Male
  Weight: 2.72 kg

DRUGS (1)
  1. LITHIUM [Suspect]
     Indication: DEPRESSION
     Dosage: DO NOT REMEMBER AT THIS TIME
     Dates: start: 19940912, end: 19941112

REACTIONS (4)
  - Spina bifida [None]
  - Talipes [None]
  - Exomphalos [None]
  - Maternal drugs affecting foetus [None]
